FAERS Safety Report 6716867-8 (Version None)
Quarter: 2010Q2

REPORT INFORMATION
  Report Type: 
  Country: None (occurrence: None)
  Receive Date: 20100510
  Receipt Date: 20100503
  Transmission Date: 20101027
  Serious: Yes (Hospitalization)
  Sender: FDA-Public Use
  Company Number: US-CEPHALON-2010001432

PATIENT
  Sex: Female
  Weight: 77 kg

DRUGS (10)
  1. NUVIGIL [Suspect]
     Indication: NARCOLEPSY
     Route: 048
     Dates: start: 20091201
  2. HUMALOG [Concomitant]
  3. LANTUS [Concomitant]
  4. LASIX [Concomitant]
  5. FOLIC ACID [Concomitant]
  6. DIGOXIN [Concomitant]
  7. CYMBALTA [Concomitant]
  8. ASPIRIN [Concomitant]
  9. FENTANYL [Concomitant]
  10. DILAUDID [Concomitant]

REACTIONS (4)
  - CARDIAC FAILURE CONGESTIVE [None]
  - CELLULITIS [None]
  - CHRONIC OBSTRUCTIVE PULMONARY DISEASE [None]
  - DRUG INEFFECTIVE [None]
